FAERS Safety Report 5623772-7 (Version None)
Quarter: 2008Q1

REPORT INFORMATION
  Report Type: 
  Country: None (occurrence: None)
  Receive Date: 20080212
  Receipt Date: 20080208
  Transmission Date: 20080703
  Serious: Yes (Hospitalization)
  Sender: FDA-Public Use
  Company Number: GB-MERCK-0706GBR00025

PATIENT
  Age: 81 Year
  Sex: Male

DRUGS (4)
  1. ZOCOR [Suspect]
     Indication: PROPHYLAXIS
     Route: 048
     Dates: end: 20061119
  2. FLUCONAZOLE [Suspect]
     Indication: OESOPHAGITIS
     Route: 048
     Dates: start: 20061026, end: 20061120
  3. OCTREOTIDE [Concomitant]
     Indication: VIPOMA
     Route: 058
     Dates: start: 20061007
  4. ACETAMINOPHEN [Concomitant]
     Indication: PAIN
     Route: 048

REACTIONS (2)
  - RENAL IMPAIRMENT [None]
  - RHABDOMYOLYSIS [None]
